FAERS Safety Report 18067257 (Version 2)
Quarter: 2020Q3

REPORT INFORMATION
  Report Type: Spontaneous
  Country: FR (occurrence: FR)
  Receive Date: 20200724
  Receipt Date: 20200923
  Transmission Date: 20201103
  Serious: Yes (Congenital Anomaly, Other)
  Sender: FDA-Public Use
  Company Number: FR-MYLANLABS-2020M1066150

PATIENT
  Sex: Female

DRUGS (1)
  1. VALPROIC ACID. [Suspect]
     Active Substance: VALPROIC ACID
     Indication: PRODUCT USED FOR UNKNOWN INDICATION
     Dosage: UNK
     Route: 064
     Dates: start: 198210, end: 19830705

REACTIONS (12)
  - Speech disorder developmental [Unknown]
  - Behaviour disorder [Unknown]
  - Palatal disorder [Unknown]
  - Ear disorder [Unknown]
  - Nasal disorder [Unknown]
  - Kyphoscoliosis [Unknown]
  - Learning disability [Unknown]
  - Scoliosis [Unknown]
  - Epilepsy [Unknown]
  - Intervertebral disc disorder [Unknown]
  - Foetal exposure during pregnancy [Recovered/Resolved]
  - Oropharyngeal discomfort [Unknown]
